FAERS Safety Report 21609243 (Version 1)
Quarter: 2022Q4

REPORT INFORMATION
  Report Type: Spontaneous
  Country: US (occurrence: None)
  Receive Date: 20221116
  Receipt Date: 20221116
  Transmission Date: 20230113
  Serious: No
  Sender: FDA-Public Use
  Company Number: None

PATIENT
  Age: 72 Year
  Sex: Female

DRUGS (1)
  1. OTEZLA [Suspect]
     Active Substance: APREMILAST
     Dosage: FREQUENCY : DAILY;?
     Route: 048
     Dates: start: 202006

REACTIONS (2)
  - Breast cancer female [None]
  - Hip arthroplasty [None]

NARRATIVE: CASE EVENT DATE: 20221101
